FAERS Safety Report 16732256 (Version 1)
Quarter: 2019Q3

REPORT INFORMATION
  Report Type: Report from Study
  Country: MX (occurrence: MX)
  Receive Date: 20190822
  Receipt Date: 20190822
  Transmission Date: 20191005
  Serious: Yes (Other)
  Sender: FDA-Public Use
  Company Number: PHHY2019MX160596

PATIENT
  Age: 49 Year
  Sex: Female
  Weight: 59 kg

DRUGS (2)
  1. IBRANCE [Concomitant]
     Active Substance: PALBOCICLIB
     Indication: HORMONE LEVEL ABNORMAL
     Dosage: 1 DF, QD (DURING 7 DAYS, THEN STOPS MEDICATION FOR 15 DAYS)
     Route: 048
     Dates: start: 20190425
  2. FEMARA [Suspect]
     Active Substance: LETROZOLE
     Indication: HORMONE LEVEL ABNORMAL
     Dosage: 2.5 MG, QD
     Route: 048
     Dates: start: 201904

REACTIONS (7)
  - Ear discomfort [Recovered/Resolved]
  - Fall [Recovering/Resolving]
  - Excessive cerumen production [Recovered/Resolved]
  - Dyspepsia [Unknown]
  - Deafness unilateral [Unknown]
  - Abdominal discomfort [Unknown]
  - Product use in unapproved indication [Unknown]

NARRATIVE: CASE EVENT DATE: 201904
